FAERS Safety Report 17166647 (Version 3)
Quarter: 2020Q1

REPORT INFORMATION
  Report Type: Report from Study
  Country: US (occurrence: US)
  Receive Date: 20191217
  Receipt Date: 20200204
  Transmission Date: 20200409
  Serious: No
  Sender: FDA-Public Use
  Company Number: NVSC2019US048540

PATIENT
  Sex: Female

DRUGS (1)
  1. GILENYA [Suspect]
     Active Substance: FINGOLIMOD HYDROCHLORIDE
     Indication: MULTIPLE SCLEROSIS
     Dosage: 0.5 MG, QD
     Route: 048
     Dates: start: 20191014

REACTIONS (7)
  - Diplopia [Unknown]
  - Balance disorder [Unknown]
  - Bone density decreased [Unknown]
  - Abdominal pain upper [Unknown]
  - Hypoacusis [Unknown]
  - Constipation [Unknown]
  - Macule [Unknown]
